FAERS Safety Report 13238906 (Version 2)
Quarter: 2017Q2

REPORT INFORMATION
  Report Type: Report from Study
  Country: JP (occurrence: JP)
  Receive Date: 20170216
  Receipt Date: 20170406
  Transmission Date: 20170830
  Serious: Yes (Other)
  Sender: FDA-Public Use
  Company Number: JP-CELGENEUS-JPN-2016111066

PATIENT
  Age: 78 Year
  Sex: Male
  Weight: 41 kg

DRUGS (47)
  1. VIDAZA [Suspect]
     Active Substance: AZACITIDINE
     Dosage: 100MG
     Route: 065
     Dates: start: 20120507, end: 20120515
  2. VIDAZA [Suspect]
     Active Substance: AZACITIDINE
     Dosage: 75 MG/M2
     Route: 065
     Dates: start: 20140924, end: 20141002
  3. VIDAZA [Suspect]
     Active Substance: AZACITIDINE
     Dosage: 75 MG/M2
     Route: 065
     Dates: start: 20141105, end: 20141114
  4. HERBAL NOS [Concomitant]
     Active Substance: HERBALS
     Indication: PRODUCT USED FOR UNKNOWN INDICATION
     Route: 065
     Dates: end: 20131002
  5. PRAMIPEXOLE HYDROCHLORIDE HYDRATE [Concomitant]
     Active Substance: PRAMIPEXOLE DIHYDROCHLORIDE
     Indication: PRODUCT USED FOR UNKNOWN INDICATION
     Route: 065
     Dates: end: 20120222
  6. ADONA [Concomitant]
     Active Substance: CARBAZOCHROME SODIUM SULFONATE
     Indication: PRODUCT USED FOR UNKNOWN INDICATION
     Route: 065
     Dates: start: 20150528, end: 20150805
  7. SENNOSIDE [Concomitant]
     Active Substance: SENNOSIDES
     Indication: PRODUCT USED FOR UNKNOWN INDICATION
     Route: 065
     Dates: start: 20120511, end: 20120517
  8. VIDAZA [Suspect]
     Active Substance: AZACITIDINE
     Indication: MYELODYSPLASTIC SYNDROME
     Dosage: 100 MILLIGRAM
     Route: 041
     Dates: start: 20120123, end: 20120129
  9. VIDAZA [Suspect]
     Active Substance: AZACITIDINE
     Dosage: 100MG
     Route: 065
     Dates: start: 20120611, end: 20120619
  10. BFLUID [Concomitant]
     Active Substance: AMINO ACIDS\DEXTROSE\ELECTROLYTES NOS\VITAMINS
     Indication: PRODUCT USED FOR UNKNOWN INDICATION
     Route: 065
     Dates: start: 20120727, end: 20120727
  11. MYSLEE [Concomitant]
     Active Substance: ZOLPIDEM TARTRATE
     Indication: PRODUCT USED FOR UNKNOWN INDICATION
     Route: 065
     Dates: start: 20120124, end: 20131002
  12. VIDAZA [Suspect]
     Active Substance: AZACITIDINE
     Dosage: 75 MG/M2
     Route: 065
     Dates: start: 20131105, end: 20131113
  13. VIDAZA [Suspect]
     Active Substance: AZACITIDINE
     Dosage: 75 MG/M2
     Route: 065
     Dates: start: 20140120, end: 20140128
  14. MEILAX [Concomitant]
     Active Substance: ETHYL LOFLAZEPATE
     Indication: PRODUCT USED FOR UNKNOWN INDICATION
     Route: 065
     Dates: end: 20120222
  15. GASCON [Concomitant]
     Active Substance: DIMETHICONE
     Indication: PRODUCT USED FOR UNKNOWN INDICATION
     Route: 065
     Dates: start: 20120126, end: 20120222
  16. VIDAZA [Suspect]
     Active Substance: AZACITIDINE
     Dosage: 100MG
     Route: 065
     Dates: start: 20120222, end: 20120301
  17. VIDAZA [Suspect]
     Active Substance: AZACITIDINE
     Dosage: 75 MG/M2
     Route: 041
     Dates: start: 20150128, end: 20150205
  18. PRAMIPEXOLE HYDROCHLORIDE HYDRATE [Concomitant]
     Active Substance: PRAMIPEXOLE DIHYDROCHLORIDE
     Route: 065
     Dates: start: 20120329, end: 20150805
  19. GRANISETRON [Concomitant]
     Active Substance: GRANISETRON
     Route: 065
     Dates: start: 20120326
  20. MYCOSYST [Concomitant]
     Active Substance: FLUCONAZOLE
     Indication: PRODUCT USED FOR UNKNOWN INDICATION
     Route: 065
     Dates: start: 20120906, end: 20150907
  21. VITAMEDIN [Concomitant]
     Active Substance: CYANOCOBALAMIN\PYRIDOXINE HYDROCHLORIDE\THIAMINE
     Indication: PRODUCT USED FOR UNKNOWN INDICATION
     Route: 065
     Dates: start: 20120727, end: 20120727
  22. LOPERAMIDE HYDROCHLORIDE. [Concomitant]
     Active Substance: LOPERAMIDE HYDROCHLORIDE
     Indication: PRODUCT USED FOR UNKNOWN INDICATION
     Route: 065
     Dates: start: 20120705
  23. VIDAZA [Suspect]
     Active Substance: AZACITIDINE
     Dosage: 100MG
     Route: 065
     Dates: start: 20120723, end: 20120731
  24. VIDAZA [Suspect]
     Active Substance: AZACITIDINE
     Dosage: 75 MG/M2
     Route: 065
     Dates: start: 20140317, end: 20140326
  25. GASCON [Concomitant]
     Active Substance: DIMETHICONE
     Route: 065
     Dates: start: 20131127, end: 20150805
  26. VIDAZA [Suspect]
     Active Substance: AZACITIDINE
     Dosage: 75 MG/M2
     Route: 065
     Dates: start: 20130507, end: 20130515
  27. VIDAZA [Suspect]
     Active Substance: AZACITIDINE
     Dosage: 75 MG/M2
     Route: 065
     Dates: start: 20130909, end: 20130918
  28. VIDAZA [Suspect]
     Active Substance: AZACITIDINE
     Dosage: 75 MG/M2
     Route: 065
     Dates: start: 20140512, end: 20140520
  29. VIDAZA [Suspect]
     Active Substance: AZACITIDINE
     Dosage: 75 MG/M2
     Route: 065
     Dates: start: 20140723, end: 20140731
  30. HEPARINOID [Concomitant]
     Active Substance: CHONDROITIN SULFATE (BOVINE)
     Indication: PRODUCT USED FOR UNKNOWN INDICATION
     Route: 065
     Dates: start: 20120524
  31. ACETAMINOPHEN. [Concomitant]
     Active Substance: ACETAMINOPHEN
     Indication: PRODUCT USED FOR UNKNOWN INDICATION
     Route: 065
     Dates: start: 20120222, end: 20120222
  32. VIDAZA [Suspect]
     Active Substance: AZACITIDINE
     Dosage: 75 MG/M2
     Route: 065
     Dates: start: 20130212, end: 20130220
  33. LANSOPRAZOLE. [Concomitant]
     Active Substance: LANSOPRAZOLE
     Indication: PRODUCT USED FOR UNKNOWN INDICATION
     Route: 065
     Dates: end: 20120313
  34. ALBUMIN [Concomitant]
     Active Substance: ALBUMIN HUMAN
     Indication: PRODUCT USED FOR UNKNOWN INDICATION
     Route: 065
     Dates: end: 20150805
  35. MEILAX [Concomitant]
     Active Substance: ETHYL LOFLAZEPATE
     Route: 065
     Dates: start: 20120329, end: 20150805
  36. GRANISETRON [Concomitant]
     Active Substance: GRANISETRON
     Indication: PRODUCT USED FOR UNKNOWN INDICATION
     Route: 065
     Dates: start: 20120222, end: 20120301
  37. BIFIDOBACTERIUM [Concomitant]
     Active Substance: BIFIDOBACTERIUM LONGUM
     Route: 065
     Dates: start: 20130619, end: 20150805
  38. SODIUM RABEPRAZOLE [Concomitant]
     Active Substance: RABEPRAZOLE SODIUM
     Indication: PRODUCT USED FOR UNKNOWN INDICATION
     Route: 065
     Dates: start: 20131108, end: 20150107
  39. CRAVIT [Concomitant]
     Active Substance: LEVOFLOXACIN
     Indication: PRODUCT USED FOR UNKNOWN INDICATION
     Route: 065
     Dates: start: 20120126, end: 20141224
  40. VIDAZA [Suspect]
     Active Substance: AZACITIDINE
     Dosage: 100MG
     Route: 065
     Dates: start: 20120326, end: 20120403
  41. VIDAZA [Suspect]
     Active Substance: AZACITIDINE
     Dosage: 75 MG/M2
     Route: 065
     Dates: start: 20120924, end: 20121002
  42. VIDAZA [Suspect]
     Active Substance: AZACITIDINE
     Dosage: 75 MG/M2
     Route: 065
     Dates: start: 20121203, end: 20121211
  43. VIDAZA [Suspect]
     Active Substance: AZACITIDINE
     Dosage: 75 MG/M2
     Route: 065
     Dates: start: 20130716, end: 20130724
  44. MAGNESIUM [Concomitant]
     Active Substance: MAGNESIUM
     Indication: PRODUCT USED FOR UNKNOWN INDICATION
     Route: 065
     Dates: start: 20120126, end: 20131002
  45. ISODINE [Concomitant]
     Active Substance: POVIDONE-IODINE
     Indication: PRODUCT USED FOR UNKNOWN INDICATION
     Route: 065
     Dates: start: 20120222, end: 20150907
  46. BIFIDOBACTERIUM [Concomitant]
     Active Substance: BIFIDOBACTERIUM LONGUM
     Indication: PRODUCT USED FOR UNKNOWN INDICATION
     Route: 065
     Dates: start: 20120705, end: 20120718
  47. SHAKUYAKUKANZOTO [Concomitant]
     Active Substance: HERBALS
     Indication: PRODUCT USED FOR UNKNOWN INDICATION
     Route: 065
     Dates: start: 20120418, end: 20120508

REACTIONS (12)
  - Haemoglobin decreased [Not Recovered/Not Resolved]
  - Blood phosphorus decreased [Recovered/Resolved]
  - Blood phosphorus decreased [Recovered/Resolved]
  - Platelet count decreased [Not Recovered/Not Resolved]
  - Blast cell count increased [Recovered/Resolved]
  - Hypophosphataemia [Recovered/Resolved]
  - Blood urea increased [Recovered/Resolved]
  - Blood urea increased [Not Recovered/Not Resolved]
  - Haemoglobin decreased [Not Recovered/Not Resolved]
  - Platelet count decreased [Not Recovered/Not Resolved]
  - Platelet count decreased [Recovered/Resolved]
  - Haemoglobin decreased [Not Recovered/Not Resolved]

NARRATIVE: CASE EVENT DATE: 20121001
